FAERS Safety Report 15799149 (Version 1)
Quarter: 2019Q1

REPORT INFORMATION
  Report Type: Spontaneous
  Country: JP (occurrence: JP)
  Receive Date: 20190108
  Receipt Date: 20190108
  Transmission Date: 20190417
  Serious: Yes (Other)
  Sender: FDA-Public Use
  Company Number: JP-SA-2018SA395336

PATIENT
  Age: 64 Year
  Sex: Female

DRUGS (2)
  1. ZALTRAP [Suspect]
     Active Substance: ZIV-AFLIBERCEPT
     Indication: MACULAR OEDEMA
     Dosage: AFTER PERFORMING THE THIRD INJECTION
  2. ZALTRAP [Suspect]
     Active Substance: ZIV-AFLIBERCEPT
     Dosage: INTRAVITREAL AFLIBERCEPT INJECTION WAS ADMINISTERED (FIRST TREATMENT)
     Route: 031

REACTIONS (3)
  - Visual field defect [Recovering/Resolving]
  - Macular hole [Recovered/Resolved]
  - Condition aggravated [Recovering/Resolving]
